FAERS Safety Report 6362316-1 (Version None)
Quarter: 2009Q3

REPORT INFORMATION
  Report Type: 
  Country: None (occurrence: None)
  Receive Date: 20090918
  Receipt Date: 20090826
  Transmission Date: 20100115
  Serious: No
  Sender: FDA-Public Use
  Company Number: US-ABBOTT-09P-163-0593873-00

PATIENT
  Sex: Male
  Weight: 74.91 kg

DRUGS (7)
  1. HUMIRA [Suspect]
     Indication: PSORIATIC ARTHROPATHY
     Route: 058
     Dates: start: 20080201
  2. VITAMIN B COMPLEX CAP [Concomitant]
     Indication: VITAMIN SUPPLEMENTATION
     Route: 048
  3. ST. JOHN'S WORT [Concomitant]
     Indication: AFFECTIVE DISORDER
     Dosage: NOT CONSISTENT USE
     Route: 048
  4. ST. JOHN'S WORT [Concomitant]
     Indication: ANXIETY
  5. ST. JOHN'S WORT [Concomitant]
     Indication: STRESS
  6. PROPECIA [Concomitant]
     Indication: ALOPECIA
     Dosage: NOT CONSISTENT USE
     Route: 048
  7. PROPECIA [Concomitant]
     Indication: PROPHYLAXIS

REACTIONS (7)
  - ANXIETY [None]
  - DRUG EFFECT DECREASED [None]
  - ERYTHEMA OF EYELID [None]
  - EYE PAIN [None]
  - EYELID OEDEMA [None]
  - HORDEOLUM [None]
  - PAIN IN EXTREMITY [None]
